FAERS Safety Report 6890995-9 (Version None)
Quarter: 2010Q3

REPORT INFORMATION
  Report Type: 
  Country: None (occurrence: None)
  Receive Date: 20100731
  Receipt Date: 20090503
  Transmission Date: 20110219
  Serious: No
  Sender: FDA-Public Use
  Company Number: US-PFIZER INC-2009178393

PATIENT
  Sex: Female
  Weight: 53.1 kg

DRUGS (3)
  1. LIPITOR [Suspect]
     Indication: BLOOD CHOLESTEROL INCREASED
     Dosage: 20 MG, 1X/DAY
     Route: 048
     Dates: end: 20090101
  2. SENSIPAR [Suspect]
     Indication: BLOOD CALCIUM INCREASED
     Dosage: UNK
     Dates: end: 20090101
  3. TRICOR [Concomitant]
     Dosage: UNK

REACTIONS (3)
  - BLOOD CALCIUM INCREASED [None]
  - HYPOAESTHESIA [None]
  - PARAESTHESIA [None]
